FAERS Safety Report 16893138 (Version 3)
Quarter: 2019Q4

REPORT INFORMATION
  Report Type: Report from Study
  Country: None (occurrence: TR)
  Receive Date: 20191008
  Receipt Date: 20191017
  Transmission Date: 20200122
  Serious: Yes (Hospitalization)
  Sender: FDA-Public Use
  Company Number: TR-ABBVIE-19K-161-2949660-00

PATIENT
  Age: 55 Year
  Sex: Male
  Weight: 75 kg

DRUGS (12)
  1. CARBIDOPA LEVODOPA [Concomitant]
     Active Substance: CARBIDOPA\LEVODOPA
     Indication: PARKINSON^S DISEASE
     Dosage: DOPADEX
     Route: 048
  2. INSULIN GLARGINE [Concomitant]
     Active Substance: INSULIN GLARGINE
     Indication: DIABETES MELLITUS
     Dosage: LANTUS SOLOSTOR
     Route: 058
  3. REMERON [Concomitant]
     Active Substance: MIRTAZAPINE
     Indication: PARKINSON^S DISEASE
     Route: 048
     Dates: start: 201909
  4. CIPRALEX [Concomitant]
     Active Substance: ESCITALOPRAM OXALATE
     Indication: PARKINSON^S DISEASE
     Route: 048
  5. XANAX [Concomitant]
     Active Substance: ALPRAZOLAM
     Indication: PARKINSON^S DISEASE
     Dosage: FREQUENCY - 2X1
     Route: 048
     Dates: start: 201909
  6. NOVORAPID [Concomitant]
     Active Substance: INSULIN ASPART
     Indication: DIABETES MELLITUS
     Route: 058
  7. LEVODOPA/CARBIDOPA [Suspect]
     Active Substance: CARBIDOPA\LEVODOPA
     Dosage: MORNING DOSE(ML): 8.00 CONTINUES DOSE(ML): 3.50 EXTRA DOSE(ML):1.00
     Route: 050
     Dates: start: 20191004, end: 201910
  8. LEVODOPA/CARBIDOPA [Suspect]
     Active Substance: CARBIDOPA\LEVODOPA
     Dosage: MORNING DOSE(ML):8.00 CONTINUES DOSE(ML): 4.10EXTRA DOSE(ML):1.00
     Route: 050
     Dates: start: 20191011, end: 20191014
  9. LEVODOPA/CARBIDOPA [Suspect]
     Active Substance: CARBIDOPA\LEVODOPA
     Dosage: MORNING DOSE(ML): 8.00 CONTINUES DOSE(ML): 3.30 EXTRA DOSE(ML):1.00
     Route: 050
     Dates: start: 20191003, end: 20191004
  10. LEVODOPA/CARBIDOPA [Suspect]
     Active Substance: CARBIDOPA\LEVODOPA
     Dosage: MORNING DOSE(ML):8.00 CONTINUES DOSE(ML): 4.10EXTRA DOSE(ML):1.00
     Route: 050
     Dates: start: 20191014
  11. LEVODOPA/CARBIDOPA [Suspect]
     Active Substance: CARBIDOPA\LEVODOPA
     Indication: PARKINSON^S DISEASE
     Dosage: MORNING DOSE(ML): 6.90 CONTINUES DOSE(ML): 2.00 EXTRA DOSE(ML):1.00
     Route: 050
     Dates: start: 20191002, end: 20191002
  12. LEVODOPA/CARBIDOPA [Suspect]
     Active Substance: CARBIDOPA\LEVODOPA
     Dosage: MORNING DOSE(ML):8.00 CONTINUES DOSE(ML): 4.10EXTRA?DOSE(ML):1.00
     Route: 050
     Dates: start: 20191009, end: 20191011

REACTIONS (8)
  - Hypophagia [Recovered/Resolved]
  - C-reactive protein increased [Recovered/Resolved]
  - Abdominal pain [Recovered/Resolved]
  - Pyrexia [Recovered/Resolved]
  - Pyrexia [Recovered/Resolved]
  - Stoma site erythema [Recovered/Resolved]
  - Device dislocation [Recovered/Resolved]
  - Perforation [Recovered/Resolved]

NARRATIVE: CASE EVENT DATE: 20191002
